FAERS Safety Report 15606677 (Version 2)
Quarter: 2020Q1

REPORT INFORMATION
  Report Type: Report from Study
  Country: US (occurrence: US)
  Receive Date: 20181112
  Receipt Date: 20200210
  Transmission Date: 20200409
  Serious: Yes (Hospitalization, Other)
  Sender: FDA-Public Use
  Company Number: US-ROCHE-2197662

PATIENT
  Age: 50 Year
  Sex: Female
  Weight: 75.7 kg

DRUGS (2)
  1. ATEZOLIZUMAB. [Suspect]
     Active Substance: ATEZOLIZUMAB
     Indication: TRIPLE NEGATIVE BREAST CANCER
     Dosage: ON 17/JUL/2017, SHE RECEIVED THE MOST RECENT DOSE OF ATEZOLIZUMAB.
     Route: 042
     Dates: start: 20170717
  2. ZOSYN [Concomitant]
     Active Substance: PIPERACILLIN SODIUM\TAZOBACTAM SODIUM
     Route: 042

REACTIONS (7)
  - Aspartate aminotransferase increased [Unknown]
  - Myalgia [Recovering/Resolving]
  - Hypotension [Recovering/Resolving]
  - Alanine aminotransferase increased [Unknown]
  - Rash maculo-papular [Unknown]
  - Pyrexia [Recovering/Resolving]
  - Sinus tachycardia [Recovering/Resolving]

NARRATIVE: CASE EVENT DATE: 20170729
